FAERS Safety Report 25390620 (Version 1)
Quarter: 2025Q2

REPORT INFORMATION
  Report Type: Spontaneous
  Country: JP (occurrence: JP)
  Receive Date: 20250603
  Receipt Date: 20250603
  Transmission Date: 20250716
  Serious: Yes (Other)
  Sender: CHEPLAPHARM
  Company Number: JP-CHEPLA-2025005357

PATIENT
  Age: 40 Year
  Sex: Female

DRUGS (1)
  1. VALGANCICLOVIR [Suspect]
     Active Substance: VALGANCICLOVIR
     Indication: Product used for unknown indication

REACTIONS (2)
  - Bullous keratopathy [Recovering/Resolving]
  - Off label use [Unknown]
